FAERS Safety Report 24918142 (Version 1)
Quarter: 2025Q1

REPORT INFORMATION
  Report Type: Spontaneous
  Country: ES (occurrence: None)
  Receive Date: 20250110
  Receipt Date: 20250110
  Transmission Date: 20250408
  Serious: Yes (Disabling)
  Sender: FDA-CTU
  Company Number: None

PATIENT
  Sex: Female

DRUGS (4)
  1. PROLIA [Suspect]
     Active Substance: DENOSUMAB
  2. HIDROFEROL, 1 every 15 days [Concomitant]
  3. SIMVASTATIN [Concomitant]
     Active Substance: SIMVASTATIN
  4. LORAZEPAM FLUOXETINE [Concomitant]

REACTIONS (6)
  - Tendon pain [None]
  - Tendonitis [None]
  - Tendon rupture [None]
  - Hepatic infection [None]
  - Asthenia [None]
  - Arthralgia [None]

NARRATIVE: CASE EVENT DATE: 20220101
